FAERS Safety Report 12170544 (Version 1)
Quarter: 2016Q1

REPORT INFORMATION
  Report Type: Spontaneous
  Country: US (occurrence: None)
  Receive Date: 20160310
  Receipt Date: 20160310
  Transmission Date: 20160526
  Serious: Yes (Other)
  Sender: FDA-Public Use
  Company Number: None

PATIENT
  Age: 41 Year
  Sex: Male
  Weight: 0 kg

DRUGS (1)
  1. ENBREL [Suspect]
     Active Substance: ETANERCEPT
     Indication: PSORIASIS
     Dosage: SUBCUTANEOUS 057 50MG INJECTABLE WEEKLY
     Route: 058
     Dates: start: 201508, end: 20160310

REACTIONS (1)
  - Treatment failure [None]

NARRATIVE: CASE EVENT DATE: 20160204
